FAERS Safety Report 5295973-1 (Version None)
Quarter: 2007Q2

REPORT INFORMATION
  Report Type: 
  Country: None (occurrence: None)
  Receive Date: 20070413
  Receipt Date: 20070329
  Transmission Date: 20071010
  Serious: Yes (Hospitalization)
  Sender: FDA-Public Use
  Company Number: US-JNJFOC-20070303703

PATIENT
  Sex: Male

DRUGS (7)
  1. INFLIXIMAB [Suspect]
     Indication: RHEUMATOID ARTHRITIS
     Route: 042
  2. METHOTREXATE [Concomitant]
  3. FOLIC ACID [Concomitant]
  4. TAGAMET [Concomitant]
     Dosage: DAILY
  5. TYLENOL [Concomitant]
  6. ZOCOR [Concomitant]
  7. COZAAR [Concomitant]

REACTIONS (1)
  - LUNG NEOPLASM MALIGNANT [None]
